FAERS Safety Report 15550966 (Version 2)
Quarter: 2018Q4

REPORT INFORMATION
  Report Type: Spontaneous
  Country: US (occurrence: US)
  Receive Date: 20181025
  Receipt Date: 20181121
  Transmission Date: 20190205
  Serious: Yes (Other)
  Sender: FDA-Public Use
  Company Number: US-PFIZER INC-2018435773

PATIENT
  Age: 62 Year
  Sex: Female
  Weight: 71 kg

DRUGS (3)
  1. XELJANZ XR [Suspect]
     Active Substance: TOFACITINIB CITRATE
     Indication: RHEUMATOID ARTHRITIS
     Dosage: 1 DF, 2X/DAY(ONE AT NIGHT AND ONE IN THE MORNING)
  2. XELJANZ XR [Suspect]
     Active Substance: TOFACITINIB CITRATE
     Dosage: 11 MG, UNK
  3. CALCIUM CARBONATE. [Concomitant]
     Active Substance: CALCIUM CARBONATE
     Dosage: 1250 MG, 2X/DAY (TWICE A DAY ONCE IN MORNING AND ONCE IN NIGHT)

REACTIONS (7)
  - Weight decreased [Unknown]
  - Product use issue [Unknown]
  - Hand deformity [Unknown]
  - Peripheral swelling [Not Recovered/Not Resolved]
  - Hypoacusis [Unknown]
  - Seizure [Unknown]
  - Dysgraphia [Unknown]
